FAERS Safety Report 8167482 (Version 11)
Quarter: 2020Q3

REPORT INFORMATION
  Report Type: Report from Study
  Country: GB (occurrence: GB)
  Receive Date: 20111004
  Receipt Date: 20200803
  Transmission Date: 20201103
  Serious: Yes (Hospitalization)
  Sender: FDA-Public Use
  Company Number: GB-SHIRE-ALL1-2011-03681

PATIENT

DRUGS (4)
  1. PIRITON [Concomitant]
     Active Substance: CHLORPHENIRAMINE MALEATE
     Indication: PREMEDICATION
     Dosage: UNK, UNKNOWN
     Route: 048
     Dates: start: 20070524
  2. IDURSULFASE [Suspect]
     Active Substance: IDURSULFASE
     Indication: MUCOPOLYSACCHARIDOSIS II
     Dosage: 10.08 MG, 1X/WEEK(0.48MG/KG WEEKLY)
     Route: 041
     Dates: start: 20070405
  3. IDURSULFASE [Suspect]
     Active Substance: IDURSULFASE
     Dosage: 1.2 MG/KG, 1X/WEEK
     Route: 041
  4. RISPERIDONE. [Concomitant]
     Active Substance: RISPERIDONE
     Indication: BEHAVIOUR DISORDER
     Dosage: 0.5 MG, 2X/DAY:BID
     Route: 048
     Dates: start: 20110404

REACTIONS (2)
  - Lower respiratory tract infection [Recovered/Resolved]
  - Vascular device infection [Recovered/Resolved]

NARRATIVE: CASE EVENT DATE: 20110713
